FAERS Safety Report 4439340-9 (Version None)
Quarter: 2004Q3

REPORT INFORMATION
  Report Type: 
  Country: None (occurrence: None)
  Receive Date: 20040728
  Receipt Date: 20040423
  Transmission Date: 20050211
  Serious: No
  Sender: FDA-Public Use
  Company Number: USA040465871

PATIENT
  Age: 22 Year
  Sex: Male
  Weight: 77 kg

DRUGS (1)
  1. STRATTERA [Suspect]
     Indication: ATTENTION DEFICIT/HYPERACTIVITY DISORDER
     Dosage: 40 MG DAY
     Dates: start: 20040401

REACTIONS (5)
  - DIZZINESS [None]
  - LIBIDO DECREASED [None]
  - MOOD SWINGS [None]
  - PARAESTHESIA [None]
  - PERSONALITY CHANGE [None]
